FAERS Safety Report 4879522-5 (Version None)
Quarter: 2006Q1

REPORT INFORMATION
  Report Type: 
  Country: None (occurrence: None)
  Receive Date: 20060111
  Receipt Date: 20051220
  Transmission Date: 20060701
  Serious: Yes (Hospitalization)
  Sender: FDA-Public Use
  Company Number: 220855

PATIENT
  Age: 53 Year
  Sex: Male

DRUGS (5)
  1. AVASTIN [Suspect]
     Indication: COLORECTAL CANCER METASTATIC
     Dosage: 450 MG, Q2W, INTRAVENOUS
     Route: 042
     Dates: start: 20050707, end: 20051125
  2. FLUOROURACIL [Concomitant]
  3. LEUCOVORIN CALCIUM [Concomitant]
  4. FRAGMIN [Concomitant]
  5. BISOPROLOL FUMARATE [Concomitant]

REACTIONS (3)
  - ILEAL PERFORATION [None]
  - ILEAL STENOSIS [None]
  - PERITONITIS [None]
